FAERS Safety Report 17579865 (Version 1)
Quarter: 2020Q1

REPORT INFORMATION
  Report Type: Spontaneous
  Country: FR (occurrence: FR)
  Receive Date: 20200325
  Receipt Date: 20200325
  Transmission Date: 20200409
  Serious: Yes (Other)
  Sender: FDA-Public Use
  Company Number: FR-TEVA-2020-FR-1208924

PATIENT
  Age: 45 Year
  Sex: Female
  Weight: 90 kg

DRUGS (6)
  1. LEVOFLOXACINE [Suspect]
     Active Substance: LEVOFLOXACIN
     Indication: PLEURISY
     Dosage: 1000 MG
     Route: 048
     Dates: start: 20200204, end: 20200217
  2. ACARIZAX [Suspect]
     Active Substance: DERMATOPHAGOIDES FARINAE\DERMATOPHAGOIDES PTERONYSSINUS
     Indication: HYPERSENSITIVITY
     Route: 048
     Dates: end: 20200221
  3. CORTANCYL [Concomitant]
     Active Substance: PREDNISONE
  4. PLAQUENIL [Suspect]
     Active Substance: HYDROXYCHLOROQUINE SULFATE
     Indication: CUTANEOUS LUPUS ERYTHEMATOSUS
     Dosage: 2 DOSAGE FORMS
     Route: 048
     Dates: start: 20200217, end: 20200221
  5. IDEOS [Suspect]
     Active Substance: CALCIUM CARBONATE\CHOLECALCIFEROL
     Indication: VITAMIN SUPPLEMENTATION
     Dosage: 2 DOSAGE FORMS
     Route: 048
     Dates: start: 20200217, end: 20200221
  6. LUTENYL [Concomitant]
     Active Substance: NOMEGESTROL ACETATE

REACTIONS (1)
  - Hepatocellular injury [Recovering/Resolving]

NARRATIVE: CASE EVENT DATE: 20200221
